FAERS Safety Report 21559766 (Version 2)
Quarter: 2022Q4

REPORT INFORMATION
  Report Type: Spontaneous
  Country: JP (occurrence: JP)
  Receive Date: 20221107
  Receipt Date: 20221110
  Transmission Date: 20230113
  Serious: Yes (Hospitalization, Other)
  Sender: FDA-Public Use
  Company Number: JP-ONO-2022JP029666

PATIENT
  Age: 8 Decade
  Sex: Male

DRUGS (2)
  1. OPDIVO [Suspect]
     Active Substance: NIVOLUMAB
     Indication: Gastric cancer
     Route: 041
  2. REGORAFENIB [Concomitant]
     Active Substance: REGORAFENIB
     Indication: Gastric cancer
     Route: 065

REACTIONS (1)
  - Fulminant type 1 diabetes mellitus [Recovering/Resolving]
